FAERS Safety Report 10029896 (Version 1)
Quarter: 2014Q1

REPORT INFORMATION
  Report Type: Spontaneous
  Country: US (occurrence: None)
  Receive Date: 20140306
  Receipt Date: 20140306
  Transmission Date: 20141002
  Serious: Yes (Hospitalization)
  Sender: FDA-Public Use
  Company Number: 163-21880-12111431

PATIENT
  Age: 73 Year
  Sex: Female
  Weight: 87.54 kg

DRUGS (4)
  1. REVLIMID [Suspect]
     Indication: MYELODYSPLASTIC SYNDROME
     Dosage: 28 IN 28 D
     Route: 048
     Dates: start: 2010, end: 20121103
  2. REVLIMID [Suspect]
     Dosage: 28 IN 28 D
     Route: 048
     Dates: start: 2010, end: 20121103
  3. COUMADIN (WARFARIN SODIUM) (UNKNOWN) [Concomitant]
  4. GLUCOSAMIDE (GLUCOSAMIDE) (UNKNOWN) [Concomitant]

REACTIONS (1)
  - Atrial fibrillation [None]
